FAERS Safety Report 14781396 (Version 2)
Quarter: 2018Q3

REPORT INFORMATION
  Report Type: Not Available
  Country: US (occurrence: US)
  Receive Date: 20180419
  Receipt Date: 20180716
  Transmission Date: 20181010
  Serious: No
  Sender: FDA-Public Use
  Company Number: US-NEUROCRINE BIOSCIENCES INC.-2018NBI00970

PATIENT
  Age: 68 Year
  Sex: Female

DRUGS (3)
  1. INGREZZA [Suspect]
     Active Substance: VALBENAZINE
     Indication: TARDIVE DYSKINESIA
     Dates: start: 20180218, end: 20180303
  2. INGREZZA [Suspect]
     Active Substance: VALBENAZINE
     Dates: start: 20180314
  3. INGREZZA [Suspect]
     Active Substance: VALBENAZINE
     Dates: start: 20180304, end: 20180313

REACTIONS (5)
  - Poor quality sleep [Recovered/Resolved]
  - Headache [Recovered/Resolved]
  - Gait inability [Recovered/Resolved]
  - Agitation [Recovered/Resolved]
  - Asthenia [Recovered/Resolved]

NARRATIVE: CASE EVENT DATE: 20180307
